FAERS Safety Report 10210386 (Version 2)
Quarter: 2014Q3

REPORT INFORMATION
  Report Type: Spontaneous
  Country: US (occurrence: US)
  Receive Date: 20140602
  Receipt Date: 20140808
  Transmission Date: 20150326
  Serious: Yes (Other)
  Sender: FDA-Public Use
  Company Number: US-SA-2014SA068157

PATIENT
  Age: 69 Year
  Sex: Female

DRUGS (5)
  1. TRAMADOL [Interacting]
     Active Substance: TRAMADOL
     Indication: PAIN
     Route: 065
  2. SOLOSTAR [Concomitant]
     Active Substance: DEVICE
     Indication: TYPE 2 DIABETES MELLITUS
     Dates: start: 201401
  3. LANTUS SOLOSTAR [Suspect]
     Active Substance: INSULIN GLARGINE
     Indication: TYPE 2 DIABETES MELLITUS
     Dosage: DOSE:8 UNIT(S)
     Route: 058
     Dates: start: 201401
  4. LANTUS SOLOSTAR [Interacting]
     Active Substance: INSULIN GLARGINE
     Indication: TYPE 2 DIABETES MELLITUS
     Route: 058
     Dates: start: 2013
  5. SOLOSTAR [Concomitant]
     Active Substance: DEVICE
     Indication: TYPE 2 DIABETES MELLITUS
     Dates: start: 2013

REACTIONS (16)
  - Condition aggravated [Unknown]
  - Drug dose omission [Unknown]
  - Paraesthesia [Unknown]
  - Petechiae [Unknown]
  - Pain [Unknown]
  - Drug interaction [Unknown]
  - Irritability [Unknown]
  - Heart rate increased [Unknown]
  - Burning sensation [Unknown]
  - Myelitis transverse [Unknown]
  - Confusional state [Unknown]
  - Dry mouth [Unknown]
  - Blood glucose increased [Unknown]
  - Blood pressure increased [Unknown]
  - Irritable bowel syndrome [Unknown]
  - Contusion [Unknown]
